FAERS Safety Report 10664654 (Version 1)
Quarter: 2014Q4

REPORT INFORMATION
  Report Type: Spontaneous
  Country: US (occurrence: None)
  Receive Date: 20141205
  Receipt Date: 20141205
  Transmission Date: 20150529
  Serious: Yes (Other)
  Sender: FDA-Public Use
  Company Number: 163-POMAL-14072846

PATIENT
  Age: 55 Year
  Sex: Female
  Weight: 100 kg

DRUGS (23)
  1. FLUDROCORTISONE(FLUDROCORTISONE) [Concomitant]
  2. LEVAQUIN(LEVOFLOXACIN) [Concomitant]
  3. CARAFATE(SUCRALFATE) [Concomitant]
  4. LEVAQUIN(LEVOFLOXACIN) [Concomitant]
  5. ALBUTEROL(SALBUTAMOL) [Concomitant]
  6. RED CLOVER COMBINATION [Concomitant]
  7. ALBUTEROL(SALBUTAMOL) [Concomitant]
  8. ESTER C [Concomitant]
  9. MUSHROOM COMPLEX (MUSHROOM 5 COMPLEX) [Concomitant]
  10. POMALYST [Suspect]
     Active Substance: POMALIDOMIDE
     Indication: PLASMA CELL MYELOMA
     Route: 048
     Dates: start: 20130503
  11. SELENIUM(SELENIUM) [Concomitant]
  12. MULTIVITAMINS [Concomitant]
     Active Substance: VITAMINS
  13. VALACYCLOVIR(VALACICLOVIR HYDROCHLORIDE) [Concomitant]
  14. LOVENOX(HEPARIN-FRACTION SODIUM SLAT) [Concomitant]
  15. ACIDOPHILUS(LACTOBACILLUS ACIDOPHILUS) [Concomitant]
  16. PROZAC(FLUOXETINE HYDROCHLORIDE) [Concomitant]
  17. DEXAMETHASONE(DEXAMETHASONE) [Concomitant]
  18. VITAMIN D3(COLECALCIFEROL) [Concomitant]
  19. NEXIUM(ESOMEPRAZOLE) [Concomitant]
  20. FLUDROCORTISONE(FLUDROCORTISONE) [Concomitant]
  21. BIAXIN(CLARFITHROMYCIN) [Concomitant]
  22. ZINC(ZINC) [Concomitant]
  23. CLARIFTHROMYCIN(CLARFITHROMYCIN) [Concomitant]

REACTIONS (6)
  - Platelet count decreased [None]
  - Constipation [None]
  - Neutrophil count decreased [None]
  - Diarrhoea [None]
  - Abdominal pain upper [None]
  - White blood cell count decreased [None]

NARRATIVE: CASE EVENT DATE: 2014
